FAERS Safety Report 10064433 (Version 1)
Quarter: 2014Q2

REPORT INFORMATION
  Report Type: Spontaneous
  Country: FR (occurrence: None)
  Receive Date: 20140404
  Receipt Date: 20140404
  Transmission Date: 20141212
  Serious: Yes (Hospitalization)
  Sender: FDA-Public Use
  Company Number: SYM-2014-19151

PATIENT
  Age: 58 Year
  Sex: Female

DRUGS (3)
  1. MONO-TILDIEM (DILTIAZEM HYDROCHLORIDE) (300 MG, GASTRO-RESISTANT CAPSULE) [Suspect]
     Indication: HYPERTENSION
     Dates: start: 20140125, end: 20140222
  2. ASPEGIC (ACETYLSALICYLATE LYSINE) [Concomitant]
  3. DOLIPRANE (PARACETAMOL) [Concomitant]

REACTIONS (1)
  - Rash maculo-papular [None]
